FAERS Safety Report 17069622 (Version 1)
Quarter: 2019Q4

REPORT INFORMATION
  Report Type: Spontaneous
  Country: US (occurrence: US)
  Receive Date: 20191125
  Receipt Date: 20191125
  Transmission Date: 20200122
  Serious: No
  Sender: FDA-Public Use
  Company Number: US-ALLERGAN-1923531US

PATIENT
  Sex: Male
  Weight: 86 kg

DRUGS (5)
  1. LENVIMA [Suspect]
     Active Substance: LENVATINIB
     Dosage: 12 MG, QD
     Route: 048
     Dates: start: 20190331, end: 20190513
  2. NAMENDA [Suspect]
     Active Substance: MEMANTINE HYDROCHLORIDE
     Indication: PRODUCT USED FOR UNKNOWN INDICATION
     Route: 065
  3. ZOFRAN [Concomitant]
     Active Substance: ONDANSETRON HYDROCHLORIDE
     Indication: PRODUCT USED FOR UNKNOWN INDICATION
     Route: 065
  4. LENVIMA [Suspect]
     Active Substance: LENVATINIB
     Indication: HEPATOCELLULAR CARCINOMA
     Dosage: 8 MG, QD
     Route: 048
     Dates: start: 20190514
  5. LACTULOSE. [Concomitant]
     Active Substance: LACTULOSE
     Indication: PRODUCT USED FOR UNKNOWN INDICATION
     Route: 065

REACTIONS (9)
  - Nausea [Unknown]
  - Vomiting [Unknown]
  - Ammonia increased [Unknown]
  - Diarrhoea [Unknown]
  - Haematocrit decreased [Unknown]
  - Confusional state [Unknown]
  - Hypotension [Unknown]
  - Abdominal pain upper [Unknown]
  - Blood glucose decreased [Unknown]

NARRATIVE: CASE EVENT DATE: 2019
